FAERS Safety Report 23355172 (Version 3)
Quarter: 2024Q1

REPORT INFORMATION
  Report Type: Spontaneous
  Country: US (occurrence: US)
  Receive Date: 20240102
  Receipt Date: 20240112
  Transmission Date: 20240410
  Serious: No
  Sender: FDA-Public Use
  Company Number: US-OPELLA-2023OHG020787

PATIENT
  Sex: Female

DRUGS (1)
  1. ICY HOT MEDICATED NO MESS APPLICATOR [Suspect]
     Active Substance: MENTHOL
     Indication: Product used for unknown indication
     Dosage: STRENGTH - 7,04 G/44 ML
     Dates: start: 20231225

REACTIONS (5)
  - Application site swelling [Unknown]
  - Application site vesicles [Unknown]
  - Application site pain [Unknown]
  - Application site burn [Unknown]
  - Application site erythema [Unknown]

NARRATIVE: CASE EVENT DATE: 20231226
